FAERS Safety Report 8149145 (Version 2)
Quarter: 2013Q2

REPORT INFORMATION
  Report Type: Spontaneous
  Country: US (occurrence: US)
  Receive Date: 20110922
  Receipt Date: 20130620
  Transmission Date: 20140414
  Serious: Yes (Other)
  Sender: FDA-Public Use
  Company Number: US-ASTRAZENECA-2011SE12614

PATIENT
  Sex: Female

DRUGS (4)
  1. SEROQUEL [Suspect]
     Dosage: 25 TO 100 MG
     Route: 048
     Dates: start: 20080516
  2. ADVAIR [Concomitant]
     Dosage: 100/50 MIS GLAX
     Dates: start: 20080418
  3. LISINOPRIL [Concomitant]
     Dates: start: 20080418
  4. ATENOLOL [Concomitant]
     Dates: start: 20080418

REACTIONS (3)
  - Pancreatitis [Unknown]
  - Diabetic coma [Unknown]
  - Type 2 diabetes mellitus [Unknown]
